FAERS Safety Report 20513376 (Version 1)
Quarter: 2022Q1

REPORT INFORMATION
  Report Type: Spontaneous
  Country: US (occurrence: US)
  Receive Date: 20220224
  Receipt Date: 20220224
  Transmission Date: 20220423
  Serious: No
  Sender: FDA-Public Use
  Company Number: US-AMNEAL PHARMACEUTICALS-2021-AMRX-03160

PATIENT
  Age: 80 Year
  Sex: Male

DRUGS (2)
  1. RYTARY [Suspect]
     Active Substance: CARBIDOPA\LEVODOPA
     Indication: Parkinson^s disease
     Dosage: 23.75/95 MG 1 CAPSULES, 3 /DAY
     Route: 048
     Dates: start: 202107, end: 202107
  2. RYTARY [Suspect]
     Active Substance: CARBIDOPA\LEVODOPA
     Dosage: 48.75/195 MG 3 CAPSULES, 3 /DAY
     Route: 048

REACTIONS (3)
  - Feeling drunk [Unknown]
  - Lethargy [Unknown]
  - Somnolence [Unknown]

NARRATIVE: CASE EVENT DATE: 20210701
